FAERS Safety Report 8840715 (Version 2)
Quarter: 2012Q4

REPORT INFORMATION
  Report Type: 
  Country: US (occurrence: US)
  Receive Date: 20121015
  Receipt Date: 20121022
  Transmission Date: 20130627
  Serious: No
  Sender: FDA-Public Use
  Company Number: US-PFIZER INC-2012254464

PATIENT
  Age: 70 Year
  Sex: Female
  Weight: 58.96 kg

DRUGS (5)
  1. LYRICA [Suspect]
     Indication: BACK PAIN
     Dosage: 75 mg, 2x/day
     Dates: start: 20120926, end: 201210
  2. TIZANIDINE [Concomitant]
     Indication: BACK PAIN
     Dosage: 2 mg, daily
  3. TIZANIDINE [Concomitant]
     Indication: NEURALGIA
  4. SERTRALINE HYDROCHLORIDE [Concomitant]
     Indication: BACK PAIN
     Dosage: 100 mg, daily
  5. HYDROCODONE [Concomitant]
     Indication: BACK PAIN
     Dosage: 5/500 mg, as needed

REACTIONS (6)
  - Drug ineffective [Unknown]
  - Oedema peripheral [Not Recovered/Not Resolved]
  - Dizziness [Recovered/Resolved]
  - Pain in extremity [Recovering/Resolving]
  - Hypoaesthesia [Recovering/Resolving]
  - Dry mouth [Unknown]
